FAERS Safety Report 23150988 (Version 7)
Quarter: 2024Q3

REPORT INFORMATION
  Report Type: Report from Study
  Country: DE (occurrence: DE)
  Receive Date: 20231106
  Receipt Date: 20240904
  Transmission Date: 20241016
  Serious: Yes (Other)
  Sender: ABBVIE
  Company Number: DE-JNJFOC-20231076469

PATIENT
  Age: 65 Year
  Sex: Male

DRUGS (2)
  1. IBRUTINIB [Suspect]
     Active Substance: IBRUTINIB
     Indication: Chronic lymphocytic leukaemia
     Route: 048
     Dates: start: 20230818, end: 20240116
  2. IBRUTINIB [Suspect]
     Active Substance: IBRUTINIB
     Indication: Chronic lymphocytic leukaemia
     Dosage: REDUCED DOSE
     Route: 048

REACTIONS (10)
  - Sudden hearing loss [Not Recovered/Not Resolved]
  - Headache [Recovering/Resolving]
  - Arthritis [Recovered/Resolved]
  - Bone pain [Recovered/Resolved]
  - Diarrhoea [Recovering/Resolving]
  - Arthritis [Recovered/Resolved]
  - Constipation [Recovered/Resolved with Sequelae]
  - Muscle spasms [Recovering/Resolving]
  - Gastrointestinal motility disorder [Recovering/Resolving]
  - Gouty arthritis [Recovered/Resolved]

NARRATIVE: CASE EVENT DATE: 20230828
